FAERS Safety Report 5897008-6 (Version None)
Quarter: 2008Q3

REPORT INFORMATION
  Report Type: 
  Country: None (occurrence: None)
  Receive Date: 20080924
  Receipt Date: 20080618
  Transmission Date: 20090109
  Serious: Yes (Other)
  Sender: FDA-Public Use
  Company Number: US-ASTRAZENECA-2008UW02252

PATIENT
  Age: 37 Year
  Sex: Male
  Weight: 97.5 kg

DRUGS (4)
  1. SEROQUEL [Suspect]
     Indication: SCHIZOPHRENIA
     Dosage: VARIOUS, INCLUDING BUT NOT LIMITED TO 300 MG
     Route: 048
     Dates: start: 20020101
  2. SEROQUEL [Suspect]
     Indication: DEPRESSION
     Dosage: VARIOUS, INCLUDING BUT NOT LIMITED TO 300 MG
     Route: 048
     Dates: start: 20020101
  3. RISPERDAL [Concomitant]
     Dates: start: 20030101
  4. PROZAC [Concomitant]
     Dates: start: 20080101

REACTIONS (4)
  - BLOOD CHOLESTEROL INCREASED [None]
  - DIABETES MELLITUS [None]
  - HYPERTENSION [None]
  - PANCREATITIS [None]
